FAERS Safety Report 26182714 (Version 1)
Quarter: 2025Q4

REPORT INFORMATION
  Report Type: Report from Study
  Country: US (occurrence: US)
  Receive Date: 20251221
  Receipt Date: 20251221
  Transmission Date: 20260117
  Serious: Yes (Other)
  Sender: ALEXION PHARMACEUTICALS
  Company Number: US-AstraZeneca-CH-01015121A

PATIENT
  Sex: Female

DRUGS (1)
  1. OLAPARIB [Suspect]
     Active Substance: OLAPARIB
     Indication: Ovarian cancer
     Dosage: 250 MILLIGRAM, BID
     Route: 061
     Dates: start: 202506

REACTIONS (7)
  - Neuropathy peripheral [Unknown]
  - Fatigue [Unknown]
  - Headache [Unknown]
  - Arthritis [Unknown]
  - Mouth ulceration [Unknown]
  - Pain in extremity [Unknown]
  - Pain in extremity [Unknown]
